FAERS Safety Report 9857865 (Version 1)
Quarter: 2014Q1

REPORT INFORMATION
  Report Type: Report from Study
  Country: US (occurrence: US)
  Receive Date: 20140131
  Receipt Date: 20140131
  Transmission Date: 20141002
  Serious: Yes (Other)
  Sender: FDA-Public Use
  Company Number: US-ROCHE-1339462

PATIENT
  Sex: Male

DRUGS (2)
  1. NUTROPIN AQ [Suspect]
     Indication: SMALL FOR DATES BABY
     Dosage: QD
     Route: 058
     Dates: start: 20110528
  2. ARIMIDEX [Concomitant]
     Dosage: QD
     Route: 048
     Dates: start: 201209

REACTIONS (2)
  - Insulin-like growth factor increased [Unknown]
  - Headache [Unknown]
